FAERS Safety Report 21664855 (Version 2)
Quarter: 2022Q4

REPORT INFORMATION
  Report Type: Spontaneous
  Country: IT (occurrence: IT)
  Receive Date: 20221130
  Receipt Date: 20221216
  Transmission Date: 20230113
  Serious: Yes (Hospitalization, Other)
  Sender: FDA-Public Use
  Company Number: US-Emergent Biosolutions-22000290

PATIENT
  Age: 63 Year
  Sex: Female

DRUGS (2)
  1. BAT [Suspect]
     Active Substance: EQUINE BOTULINUM NEUROTOXIN A/B/C/D/E/F/G IMMUNE FAB2
     Indication: Botulism
     Dosage: 1 VIAL
     Route: 042
     Dates: start: 20221117, end: 20221117
  2. BAT [Suspect]
     Active Substance: EQUINE BOTULINUM NEUROTOXIN A/B/C/D/E/F/G IMMUNE FAB2
     Dosage: COMPLETED
     Route: 042
     Dates: start: 20221117

REACTIONS (5)
  - Respiratory tract oedema [Recovering/Resolving]
  - Depressed level of consciousness [Recovering/Resolving]
  - Stridor [Recovering/Resolving]
  - Oxygen saturation decreased [Recovering/Resolving]
  - Tachycardia [Recovering/Resolving]

NARRATIVE: CASE EVENT DATE: 20221117
